FAERS Safety Report 4284866-4 (Version None)
Quarter: 2004Q1

REPORT INFORMATION
  Report Type: 
  Country: None (occurrence: None)
  Receive Date: 20040204
  Receipt Date: 20040126
  Transmission Date: 20041129
  Serious: Yes (Other)
  Sender: FDA-Public Use
  Company Number: PHFR2004GB00786

PATIENT
  Age: 56 Year
  Sex: Female

DRUGS (3)
  1. TERBINAFINE HCL [Suspect]
     Indication: ONYCHOMYCOSIS
     Dosage: 250 MG, QD
     Route: 048
     Dates: start: 20031024, end: 20031113
  2. SERTRALINE [Concomitant]
     Indication: DEPRESSION
     Dosage: 50MG/DAY
     Route: 048
     Dates: start: 19980101
  3. NUVELLE [Concomitant]
     Indication: HORMONE REPLACEMENT THERAPY
     Route: 048
     Dates: start: 19960101

REACTIONS (1)
  - OEDEMA MOUTH [None]
